FAERS Safety Report 9417803 (Version 2)
Quarter: 2013Q3

REPORT INFORMATION
  Report Type: Spontaneous
  Country: IE (occurrence: IE)
  Receive Date: 20130724
  Receipt Date: 20130813
  Transmission Date: 20140515
  Serious: Yes (Hospitalization)
  Sender: FDA-Public Use
  Company Number: IE-GLAXOSMITHKLINE-B0910218A

PATIENT
  Sex: Female

DRUGS (7)
  1. VENTOLIN [Suspect]
     Indication: CHRONIC OBSTRUCTIVE PULMONARY DISEASE
     Dosage: 2.5MG FOUR TIMES PER DAY
     Route: 055
  2. IPRATROPIUM [Concomitant]
     Dosage: .5MG SEE DOSAGE TEXT
  3. SPIRIVA [Concomitant]
     Dosage: 18MCG PER DAY
  4. SERETIDE DISKUS [Concomitant]
     Dosage: 500MCG TWICE PER DAY
  5. THEOPHYLLINE [Concomitant]
     Dosage: 400MG TWICE PER DAY
  6. OMEPRAZOLE [Concomitant]
     Dosage: 40MG PER DAY
  7. BUMETANIDE [Concomitant]
     Dosage: 1MG PER DAY

REACTIONS (1)
  - Chest pain [Unknown]
